FAERS Safety Report 22396742 (Version 1)
Quarter: 2023Q2

REPORT INFORMATION
  Report Type: Spontaneous
  Country: US (occurrence: US)
  Receive Date: 20230601
  Receipt Date: 20230601
  Transmission Date: 20230722
  Serious: No
  Sender: FDA-Public Use
  Company Number: US-APIL-2310907US

PATIENT
  Sex: Male

DRUGS (2)
  1. DURYSTA [Suspect]
     Active Substance: BIMATOPROST
     Indication: Glaucoma
     Dosage: 10 ?G, SINGLE
     Route: 031
     Dates: start: 20230404, end: 20230404
  2. DURYSTA [Suspect]
     Active Substance: BIMATOPROST
     Indication: Ocular hypertension

REACTIONS (2)
  - Implantation complication [Recovered/Resolved]
  - Product administered at inappropriate site [Recovered/Resolved]

NARRATIVE: CASE EVENT DATE: 20230404
